FAERS Safety Report 23235297 (Version 2)
Quarter: 2023Q4

REPORT INFORMATION
  Report Type: Spontaneous
  Country: US (occurrence: US)
  Receive Date: 20231128
  Receipt Date: 20231221
  Transmission Date: 20240110
  Serious: Yes (Disabling)
  Sender: FDA-Public Use
  Company Number: US-PFIZER INC-202300396315

PATIENT
  Age: 62 Year
  Sex: Female
  Weight: 66.68 kg

DRUGS (5)
  1. MIDAZOLAM [Suspect]
     Active Substance: MIDAZOLAM
     Indication: Sedation
     Dosage: SINGLE DOSE FLIP TOP VIAL
     Route: 042
     Dates: start: 20231110, end: 20231110
  2. VERSED [Suspect]
     Active Substance: MIDAZOLAM HYDROCHLORIDE
     Indication: Sedation
     Dosage: UNK, SINGLE
     Dates: start: 20231110, end: 20231110
  3. XANAX [Concomitant]
     Active Substance: ALPRAZOLAM
     Indication: Psychotic disorder
     Dosage: UNK
  4. CLOMIPRAMINE [Concomitant]
     Active Substance: CLOMIPRAMINE
     Indication: Psychotic disorder
     Dosage: UNK
  5. LISINOPRIL [Concomitant]
     Active Substance: LISINOPRIL
     Indication: Hypertension
     Dosage: UNK

REACTIONS (1)
  - Drug ineffective [Unknown]

NARRATIVE: CASE EVENT DATE: 20231110
